FAERS Safety Report 6686995-4 (Version None)
Quarter: 2010Q2

REPORT INFORMATION
  Report Type: 
  Country: None (occurrence: None)
  Receive Date: 20100419
  Receipt Date: 20100407
  Transmission Date: 20101027
  Serious: Yes (Hospitalization)
  Sender: FDA-Public Use
  Company Number: US-PFIZER INC-2010043810

PATIENT
  Sex: Female

DRUGS (2)
  1. CLEOCIN [Suspect]
     Dosage: UNK
  2. DORIDEN [Suspect]
     Dosage: UNK

REACTIONS (3)
  - GASTROINTESTINAL DISORDER [None]
  - JOINT SWELLING [None]
  - URTICARIA [None]
